FAERS Safety Report 19522163 (Version 1)
Quarter: 2021Q3

REPORT INFORMATION
  Report Type: Spontaneous
  Country: HR (occurrence: HR)
  Receive Date: 20210712
  Receipt Date: 20210712
  Transmission Date: 20211014
  Serious: Yes (Hospitalization, Other)
  Sender: FDA-Public Use
  Company Number: HR-GLAXOSMITHKLINE-HRCH2021GSK043125

PATIENT
  Age: 46 Year
  Sex: Male

DRUGS (15)
  1. DICLOFENAC [Suspect]
     Active Substance: DICLOFENAC
     Indication: MIGRAINE
     Dosage: 150?200 MG/DAY
  2. METHYLPREDNISOLONE. [Interacting]
     Active Substance: METHYLPREDNISOLONE
     Dosage: 40 MG, 1D
  3. CEFTRIAXONE. [Interacting]
     Active Substance: CEFTRIAXONE
     Indication: URINARY TRACT INFECTION
  4. METHYLPREDNISOLONE. [Interacting]
     Active Substance: METHYLPREDNISOLONE
     Dosage: UNK
     Route: 048
  5. CEFTRIAXONE. [Interacting]
     Active Substance: CEFTRIAXONE
     Indication: PNEUMONIA
     Dosage: 1 G, 1D
     Route: 042
  6. ATORVASTATIN [Interacting]
     Active Substance: ATORVASTATIN
     Indication: DYSLIPIDAEMIA
     Dosage: 20 MG, 1D
  7. CALCIUM CARBONATE. [Concomitant]
     Active Substance: CALCIUM CARBONATE
     Indication: HYPOCALCAEMIA
     Dosage: 1 G, TID
     Route: 048
  8. FUROSEMIDE. [Interacting]
     Active Substance: FUROSEMIDE
     Indication: NEPHROPATHY TOXIC
     Dosage: 40 MG, 1D
     Route: 048
  9. METHYLPREDNISOLONE. [Interacting]
     Active Substance: METHYLPREDNISOLONE
     Indication: RENAL TUBULAR INJURY
     Dosage: 250 MG, 1D
     Route: 042
  10. PROPRANOLOL [Interacting]
     Active Substance: PROPRANOLOL HYDROCHLORIDE
     Indication: MIGRAINE
     Dosage: 20 MG, TID
  11. KALINOR BRAUSE (POTASSIUM CITRATE/POTASSIUM HYDROGEN CARBONATE) [Concomitant]
     Indication: HYPOKALAEMIA
     Dosage: 2 G, 1D
  12. PANTOPRAZOLE [Interacting]
     Active Substance: PANTOPRAZOLE
     Indication: PRODUCT USED FOR UNKNOWN INDICATION
     Dosage: 40 MG, 1D
     Route: 048
  13. CALCITRIOL. [Interacting]
     Active Substance: CALCITRIOL
     Indication: HYPOCALCAEMIA
     Dosage: 0.25 UG, EVERY OTHER DAY
     Route: 048
  14. SULPHAMETHOXAZOLE + TRIMETHOPRIM [Interacting]
     Active Substance: SULFAMETHOXAZOLE\TRIMETHOPRIM
     Indication: URINARY TRACT INFECTION
     Dosage: 400/80 MG BID
     Route: 048
  15. PREDNISONE. [Interacting]
     Active Substance: PREDNISONE
     Indication: RENAL TUBULAR INJURY
     Dosage: 60 MG, 1D
     Route: 048

REACTIONS (23)
  - Enterococcal infection [Recovered/Resolved]
  - Nephropathy toxic [Recovered/Resolved]
  - Dyspnoea [Recovered/Resolved]
  - Anuria [Recovered/Resolved]
  - Cough [Recovered/Resolved]
  - Pneumonia [Recovered/Resolved]
  - Renal tubular injury [Recovered/Resolved]
  - Proteinuria [Recovered/Resolved]
  - Pyrexia [Recovered/Resolved]
  - Hypokalaemia [Recovered/Resolved]
  - Oliguria [Recovered/Resolved]
  - Drug interaction [Unknown]
  - Drug-induced liver injury [Recovered/Resolved]
  - Ascites [Recovered/Resolved]
  - Urinary tract infection [Recovered/Resolved]
  - Oedema peripheral [Recovered/Resolved]
  - Hyperhidrosis [Recovered/Resolved]
  - Chills [Recovered/Resolved]
  - Dyslipidaemia [Unknown]
  - Asthenia [Recovered/Resolved]
  - Weight increased [Recovered/Resolved]
  - Anaemia [Recovered/Resolved]
  - Hypocalcaemia [Recovered/Resolved]
